FAERS Safety Report 18464207 (Version 1)
Quarter: 2020Q4

REPORT INFORMATION
  Report Type: Report from Study
  Country: FR (occurrence: FR)
  Receive Date: 20201104
  Receipt Date: 20201104
  Transmission Date: 20210114
  Serious: Yes (Hospitalization, Other)
  Sender: FDA-Public Use
  Company Number: FR-JAZZ-2020-FR-010002

PATIENT

DRUGS (8)
  1. ZELITREX [Concomitant]
     Active Substance: VALACYCLOVIR HYDROCHLORIDE
     Indication: PROPHYLAXIS
     Dosage: 1 GRAM
     Route: 065
     Dates: start: 20170223
  2. CHOLURSO [Concomitant]
     Active Substance: URSODIOL
     Indication: VENOOCCLUSIVE LIVER DISEASE
     Dosage: UNK
     Route: 048
     Dates: start: 20170227
  3. DEFITELIO [Suspect]
     Active Substance: DEFIBROTIDE SODIUM
     Indication: VENOOCCLUSIVE LIVER DISEASE
     Dosage: 26.6 MILLIGRAM/KILOGRAM/DAY
     Route: 042
     Dates: start: 20170227, end: 20170320
  4. CICLOSPORIN [Concomitant]
     Active Substance: CYCLOSPORINE
     Indication: PROPHYLAXIS AGAINST GRAFT VERSUS HOST DISEASE
  5. TACROLIMUS. [Concomitant]
     Active Substance: TACROLIMUS
     Indication: PROPHYLAXIS AGAINST GRAFT VERSUS HOST DISEASE
  6. SOLU-MEDROL [Concomitant]
     Active Substance: METHYLPREDNISOLONE SODIUM SUCCINATE
     Indication: PROPHYLAXIS AGAINST GRAFT VERSUS HOST DISEASE
     Dosage: 1 MILLIGRAM/KILOGRAM
     Route: 042
     Dates: start: 20170228, end: 20170801
  7. METHOTREXATE. [Concomitant]
     Active Substance: METHOTREXATE
     Indication: PROPHYLAXIS AGAINST GRAFT VERSUS HOST DISEASE
  8. CLAMOXYL [AMOXICILLIN] [Concomitant]
     Active Substance: AMOXICILLIN
     Indication: INFECTION PROPHYLAXIS
     Dosage: 500 MILLIGRAM
     Route: 065
     Dates: start: 20170223

REACTIONS (10)
  - Renal failure [Recovered/Resolved]
  - Enterococcal sepsis [Recovered/Resolved]
  - Haematuria [Recovered/Resolved]
  - Off label use [Unknown]
  - Klebsiella sepsis [Recovered/Resolved]
  - Cystitis haemorrhagic [Recovered/Resolved]
  - Acute graft versus host disease [Unknown]
  - Gastrointestinal haemorrhage [Recovered/Resolved]
  - Clostridium difficile colitis [Recovered/Resolved]
  - Abdominal pain [Recovered/Resolved]

NARRATIVE: CASE EVENT DATE: 20170227
